FAERS Safety Report 13082719 (Version 2)
Quarter: 2017Q1

REPORT INFORMATION
  Report Type: Report from Study
  Country: US (occurrence: US)
  Receive Date: 20170103
  Receipt Date: 20170210
  Transmission Date: 20170428
  Serious: Yes (Other)
  Sender: FDA-Public Use
  Company Number: US-AMGEN-USASL2016185461

PATIENT
  Age: 59 Year
  Sex: Female

DRUGS (1)
  1. ENBREL [Suspect]
     Active Substance: ETANERCEPT
     Indication: RHEUMATOID ARTHRITIS
     Dosage: UNK
     Route: 065
     Dates: start: 20161122

REACTIONS (11)
  - Osteoarthritis [Unknown]
  - Limb operation [Unknown]
  - Ear disorder [Unknown]
  - Arthrectomy [Unknown]
  - Nasal congestion [Not Recovered/Not Resolved]
  - Tinnitus [Not Recovered/Not Resolved]
  - Hip surgery [Unknown]
  - Dizziness [Not Recovered/Not Resolved]
  - Therapeutic response unexpected [Unknown]
  - Raynaud^s phenomenon [Unknown]
  - Tendon disorder [Unknown]

NARRATIVE: CASE EVENT DATE: 2016
